FAERS Safety Report 16243800 (Version 3)
Quarter: 2020Q2

REPORT INFORMATION
  Report Type: Spontaneous
  Country: TH (occurrence: TH)
  Receive Date: 20190426
  Receipt Date: 20200626
  Transmission Date: 20200713
  Serious: Yes (Life-Threatening, Hospitalization, Other)
  Sender: FDA-Public Use
  Company Number: TH-SA-2019SA110673

PATIENT

DRUGS (1)
  1. DOCETAXEL. [Suspect]
     Active Substance: DOCETAXEL
     Indication: LUNG NEOPLASM MALIGNANT
     Dosage: UNK

REACTIONS (22)
  - Arrhythmia [Unknown]
  - Soft tissue infection [Recovered/Resolved]
  - Necrosis [Recovering/Resolving]
  - Leukocytosis [Unknown]
  - Diabetic ketoacidosis [Recovered/Resolved]
  - Ecthyma [Unknown]
  - Pyrexia [Unknown]
  - Septic shock [Unknown]
  - Thrombocytopenia [Unknown]
  - Somnolence [Unknown]
  - Altered state of consciousness [Unknown]
  - Erythema [Unknown]
  - Skin disorder [Unknown]
  - Tachypnoea [Unknown]
  - Acute kidney injury [Unknown]
  - Multiple organ dysfunction syndrome [Unknown]
  - Hyperglycaemic hyperosmolar nonketotic syndrome [Recovered/Resolved]
  - Respiratory failure [Unknown]
  - Skin swelling [Unknown]
  - Disseminated intravascular coagulation [Unknown]
  - Necrotising fasciitis [Recovered/Resolved]
  - Bacteraemia [Recovering/Resolving]
